FAERS Safety Report 7093973-2 (Version None)
Quarter: 2010Q4

REPORT INFORMATION
  Report Type: 
  Country: None (occurrence: None)
  Receive Date: 20101110
  Receipt Date: 20101105
  Transmission Date: 20110411
  Serious: Yes (Other)
  Sender: FDA-Public Use
  Company Number: US-PFIZER INC-2010142287

PATIENT
  Sex: Female
  Weight: 49.887 kg

DRUGS (2)
  1. VFEND [Suspect]
     Indication: EYE INFECTION FUNGAL
     Dosage: 200 MG, 2X/DAY
     Route: 048
     Dates: start: 20100101
  2. MELOXICAM [Concomitant]
     Indication: RHEUMATOID ARTHRITIS
     Dosage: 15 TO 20 MG, TWO TIMES A DAY
     Route: 048

REACTIONS (3)
  - ALOPECIA [None]
  - CORNEAL TRANSPLANT [None]
  - JOINT SWELLING [None]
